FAERS Safety Report 13592192 (Version 2)
Quarter: 2017Q2

REPORT INFORMATION
  Report Type: Spontaneous
  Country: US (occurrence: US)
  Receive Date: 20170529
  Receipt Date: 20170609
  Transmission Date: 20170830
  Serious: Yes (Life-Threatening, Other)
  Sender: FDA-Public Use
  Company Number: US-BAXTER-2017BAX021739

PATIENT
  Age: 57 Year
  Sex: Female

DRUGS (4)
  1. METRONIDAZOLE INJECTION, USP [Suspect]
     Active Substance: METRONIDAZOLE
     Indication: COLITIS
     Route: 065
  2. CEFOXITIN [Suspect]
     Active Substance: CEFOXITIN SODIUM
     Indication: COLITIS
     Route: 065
  3. ASPIRIN. [Concomitant]
     Active Substance: ASPIRIN
     Indication: PRODUCT USED FOR UNKNOWN INDICATION
     Route: 065
  4. MORPHINE [Suspect]
     Active Substance: MORPHINE
     Indication: COLITIS
     Route: 065

REACTIONS (3)
  - Disease recurrence [Unknown]
  - Anaphylactoid reaction [Unknown]
  - Circulatory collapse [Recovering/Resolving]
